FAERS Safety Report 7439488-0 (Version None)
Quarter: 2011Q2

REPORT INFORMATION
  Report Type: 
  Country: None (occurrence: None)
  Receive Date: 20110427
  Receipt Date: 20110404
  Transmission Date: 20111010
  Serious: No
  Sender: FDA-Public Use
  Company Number: US-B.I. PHARMACEUTICALS,INC./RIDGEFIELD-2011-BP-09905BP

PATIENT
  Sex: Male

DRUGS (4)
  1. MICARDIS [Suspect]
     Indication: HYPERTENSION
     Dosage: 40 MG
     Route: 048
     Dates: start: 20100101, end: 20110201
  2. LOVAZA [Concomitant]
  3. ASPIRIN [Concomitant]
  4. FLAXSEED [Concomitant]

REACTIONS (1)
  - BLOOD PRESSURE ABNORMAL [None]
